FAERS Safety Report 8559124-X (Version None)
Quarter: 2012Q3

REPORT INFORMATION
  Report Type: 
  Country: None (occurrence: None)
  Receive Date: 20120802
  Receipt Date: 20120724
  Transmission Date: 20120928
  Serious: No
  Sender: FDA-Public Use
  Company Number: US-BIOGENIDEC-2012BI027619

PATIENT
  Age: 47 Year
  Sex: Female

DRUGS (5)
  1. AMITRIPTLINE HYDROCHLORIDE TAB [Concomitant]
     Indication: MIGRAINE
  2. AVONEX [Suspect]
     Indication: MULTIPLE SCLEROSIS
     Route: 030
     Dates: start: 20100901, end: 20120601
  3. AVONEX [Suspect]
     Route: 030
     Dates: start: 20120622, end: 20120713
  4. AVONEX [Suspect]
     Route: 030
     Dates: start: 20120720
  5. NAPROXEN (ALEVE) [Concomitant]
     Indication: PREMEDICATION

REACTIONS (3)
  - MIGRAINE [None]
  - PAIN [None]
  - TREMOR [None]
